FAERS Safety Report 7569786-1 (Version None)
Quarter: 2011Q2

REPORT INFORMATION
  Report Type: 
  Country: None (occurrence: None)
  Receive Date: 20110621
  Receipt Date: 20110621
  Transmission Date: 20111010
  Serious: Yes (Other)
  Sender: FDA-Public Use
  Company Number: None

PATIENT
  Sex: Female
  Weight: 72.5755 kg

DRUGS (2)
  1. AMLODIPINE [Suspect]
     Indication: BLOOD PRESSURE
     Dosage: FEB 2011 1 PER DAY
     Dates: start: 20110201
  2. CARVEDILOL [Suspect]
     Indication: BLOOD PRESSURE
     Dosage: 3-9-11 2 PER DAY
     Dates: start: 20110309

REACTIONS (4)
  - BURNING SENSATION [None]
  - JOINT SWELLING [None]
  - BLOOD PRESSURE INCREASED [None]
  - OEDEMA PERIPHERAL [None]
